FAERS Safety Report 5002161-2 (Version None)
Quarter: 2006Q2

REPORT INFORMATION
  Report Type: 
  Country: None (occurrence: None)
  Receive Date: 20060510
  Receipt Date: 20060428
  Transmission Date: 20061013
  Serious: Yes (Hospitalization, Other)
  Sender: FDA-Public Use
  Company Number: HQWYE408120MAR06

PATIENT
  Age: 51 Year
  Sex: Male
  Weight: 87.85 kg

DRUGS (15)
  1. RAPAMUNE [Suspect]
     Indication: PROPHYLAXIS AGAINST TRANSPLANT REJECTION
     Dosage: 10 MG 1X PER 1 DAY, ORAL
     Route: 048
     Dates: start: 20060110, end: 20060314
  2. TOPROL-XL [Concomitant]
  3. NORVASC [Concomitant]
  4. COZAAR [Concomitant]
  5. ECOTRIN (ACETYLSALICYLIC ACID) [Concomitant]
  6. LIPITOR [Concomitant]
  7. CELLCEPT [Concomitant]
  8. VALCYTE [Concomitant]
  9. PEPCID [Concomitant]
  10. SEPTRA [Concomitant]
  11. NYSTATIN [Concomitant]
  12. CLINDAMYCIN [Concomitant]
  13. NEURONTIN [Concomitant]
  14. AMBIEN [Concomitant]
  15. HUMALOG [Concomitant]

REACTIONS (3)
  - COUGH [None]
  - DRUG INEFFECTIVE [None]
  - KIDNEY TRANSPLANT REJECTION [None]
